FAERS Safety Report 7503156-7 (Version None)
Quarter: 2011Q2

REPORT INFORMATION
  Report Type: 
  Country: None (occurrence: None)
  Receive Date: 20110525
  Receipt Date: 20101028
  Transmission Date: 20111010
  Serious: No
  Sender: FDA-Public Use
  Company Number: US-NOVEN-ALL1-2010-05631

PATIENT
  Sex: Male

DRUGS (4)
  1. PAXIL [Concomitant]
     Dosage: 20 MG, 1X/DAY:QD
     Route: 048
  2. GEODON [Concomitant]
     Dosage: 40 MG, 1X/DAY:QD EVERY MORNING
     Route: 048
  3. DAYTRANA [Suspect]
     Dosage: 20 MG, 1X/DAY:QD APPLIED AS (TWO 10 MG PATCHES)
     Route: 062
     Dates: start: 20100916
  4. GEODON [Concomitant]
     Dosage: 80 MG,1X/DAY:QD AT NIGHT
     Route: 048

REACTIONS (3)
  - PRODUCT QUALITY ISSUE [None]
  - WRONG TECHNIQUE IN DRUG USAGE PROCESS [None]
  - NO ADVERSE EVENT [None]
